FAERS Safety Report 7005666-8 (Version None)
Quarter: 2010Q3

REPORT INFORMATION
  Report Type: 
  Country: None (occurrence: None)
  Receive Date: 20100921
  Receipt Date: 20100910
  Transmission Date: 20110219
  Serious: Yes (Hospitalization)
  Sender: FDA-Public Use
  Company Number: B0674051A

PATIENT
  Sex: Female

DRUGS (12)
  1. ARIXTRA [Suspect]
     Indication: THROMBOSIS PROPHYLAXIS
     Dosage: 2.5MG PER DAY
     Route: 058
     Dates: start: 20100725, end: 20100727
  2. KARDEGIC [Suspect]
     Indication: CARDIOVASCULAR EVENT PROPHYLAXIS
     Dosage: 160MG PER DAY
     Route: 048
     Dates: start: 20100619, end: 20100727
  3. ROCEPHIN [Concomitant]
     Indication: URINARY TRACT INFECTION
     Route: 048
     Dates: start: 20100701
  4. BROMAZEPAM [Concomitant]
     Indication: ANXIETY
     Dosage: .25TAB AT NIGHT
     Route: 048
     Dates: start: 20100701
  5. EUPANTOL [Concomitant]
     Dosage: 20MG IN THE MORNING
     Route: 048
     Dates: start: 20100616
  6. LASIX [Concomitant]
     Dosage: 80MG PER DAY
     Route: 048
     Dates: start: 20100619
  7. HALDOL [Concomitant]
     Dosage: 15DROP AS REQUIRED
     Route: 048
     Dates: start: 20100701, end: 20100727
  8. KALEORID [Concomitant]
     Dosage: 1000MG PER DAY
     Route: 048
     Dates: start: 20100701, end: 20100727
  9. MIRTAZAPINE [Concomitant]
     Dosage: 1TAB PER DAY
     Route: 048
     Dates: start: 20100619
  10. ACETAMINOPHEN [Concomitant]
     Dosage: 3G PER DAY
     Route: 048
  11. SPECIAFOLDINE [Concomitant]
     Dosage: 10MG PER DAY
     Route: 048
     Dates: start: 20100619
  12. TIAPRIDAL [Concomitant]
     Dosage: 50MG AS REQUIRED
     Route: 048
     Dates: start: 20100701, end: 20100727

REACTIONS (6)
  - ANAEMIA [None]
  - LEUKOCYTOSIS [None]
  - MALAISE [None]
  - MUSCLE HAEMORRHAGE [None]
  - ORTHOSTATIC HYPOTENSION [None]
  - PLATELET COUNT INCREASED [None]
